FAERS Safety Report 8566642-7 (Version None)
Quarter: 2012Q3

REPORT INFORMATION
  Report Type: 
  Country: None (occurrence: None)
  Receive Date: 20120803
  Receipt Date: 20120105
  Transmission Date: 20120928
  Serious: No
  Sender: FDA-Public Use
  Company Number: US-ABBOTT-12P-163-0889772-00

PATIENT
  Sex: Male
  Weight: 65.376 kg

DRUGS (2)
  1. NIASPAN [Suspect]
     Indication: BLOOD CHOLESTEROL ABNORMAL
     Dosage: 3 IMES A DAY, 5 HOURS APART
     Dates: start: 20100701
  2. UNKNOWN CHOLESTEROL MEDICATION [Concomitant]
     Indication: PRODUCT USED FOR UNKNOWN INDICATION
     Dosage: AT BED TIME
     Route: 048

REACTIONS (2)
  - FLUSHING [None]
  - PARAESTHESIA [None]
